FAERS Safety Report 25344633 (Version 1)
Quarter: 2025Q2

REPORT INFORMATION
  Report Type: Spontaneous
  Country: US (occurrence: US)
  Receive Date: 20250522
  Receipt Date: 20250522
  Transmission Date: 20250717
  Serious: No
  Sender: ELI LILLY AND COMPANY
  Company Number: US-ELI_LILLY_AND_COMPANY-US202505017937

PATIENT

DRUGS (1)
  1. ZEPBOUND [Suspect]
     Active Substance: TIRZEPATIDE
     Indication: Weight control
     Route: 065
     Dates: start: 20250303

REACTIONS (6)
  - Body temperature increased [Unknown]
  - Palpitations [Unknown]
  - Dyspnoea [Unknown]
  - Muscular weakness [Unknown]
  - Gait disturbance [Unknown]
  - Cough [Unknown]
